FAERS Safety Report 18871447 (Version 5)
Quarter: 2021Q4

REPORT INFORMATION
  Report Type: Report from Study
  Country: MX (occurrence: MX)
  Receive Date: 20210210
  Receipt Date: 20211124
  Transmission Date: 20220303
  Serious: Yes (Other)
  Sender: FDA-Public Use
  Company Number: NVSC2021MX028672

PATIENT
  Sex: Male

DRUGS (1)
  1. EXFORGE HCT [Suspect]
     Active Substance: AMLODIPINE BESYLATE\HYDROCHLOROTHIAZIDE\VALSARTAN
     Indication: Blood pressure increased
     Dosage: UNK, 5/160/12.5 MG
     Route: 065

REACTIONS (18)
  - Pulmonary mass [Unknown]
  - Neoplasm malignant [Recovering/Resolving]
  - Haematochezia [Unknown]
  - Positron emission tomography-magnetic resonance imaging [Unknown]
  - Lung disorder [Unknown]
  - Oesophageal disorder [Unknown]
  - Prostatic disorder [Unknown]
  - Discomfort [Unknown]
  - Feeling abnormal [Unknown]
  - Glossodynia [Unknown]
  - Dry skin [Unknown]
  - Nasal dryness [Unknown]
  - Oral pain [Unknown]
  - Arthralgia [Recovering/Resolving]
  - Asthenia [Unknown]
  - Irritability [Not Recovered/Not Resolved]
  - Drug intolerance [Unknown]
  - Weight decreased [Unknown]
